FAERS Safety Report 13703521 (Version 2)
Quarter: 2017Q3

REPORT INFORMATION
  Report Type: Report from Study
  Country: US (occurrence: US)
  Receive Date: 20170629
  Receipt Date: 20170711
  Transmission Date: 20171127
  Serious: Yes (Death, Hospitalization)
  Sender: FDA-Public Use
  Company Number: US-ACTELION-A-US2017-153633

PATIENT
  Age: 54 Year
  Sex: Male
  Weight: 94.79 kg

DRUGS (7)
  1. ALLOPURINOL. [Concomitant]
     Active Substance: ALLOPURINOL
     Dosage: 300 MG, QD
  2. SILDENAFIL. [Concomitant]
     Active Substance: SILDENAFIL
     Indication: PULMONARY ARTERIAL HYPERTENSION
     Dosage: 40 MG, TID
  3. VELETRI [Suspect]
     Active Substance: EPOPROSTENOL
     Indication: PULMONARY ARTERIAL HYPERTENSION
     Dosage: 30 NG/KG, PER MIN
     Route: 042
     Dates: start: 20161018, end: 20170621
  4. COUMADIN [Concomitant]
     Active Substance: WARFARIN SODIUM
  5. GABAPENTIN. [Concomitant]
     Active Substance: GABAPENTIN
     Dosage: 600 MG, TID
  6. TORSEMIDE. [Concomitant]
     Active Substance: TORSEMIDE
     Dosage: 120 MG, QD
  7. FERROUS SULFATE. [Concomitant]
     Active Substance: FERROUS SULFATE
     Dosage: 325 MG, TID

REACTIONS (9)
  - Coma [Fatal]
  - Cerebral haemorrhage [Fatal]
  - Lethargy [Unknown]
  - Syncope [Unknown]
  - Headache [Fatal]
  - Dyspnoea [Unknown]
  - Mental status changes [Fatal]
  - Road traffic accident [Unknown]
  - Brain death [Fatal]

NARRATIVE: CASE EVENT DATE: 20170617
